FAERS Safety Report 4284092-9 (Version None)
Quarter: 2004Q1

REPORT INFORMATION
  Report Type: 
  Country: None (occurrence: None)
  Receive Date: 20040130
  Receipt Date: 20040123
  Transmission Date: 20041129
  Serious: Yes (Hospitalization)
  Sender: FDA-Public Use
  Company Number: TPA2004A00088

PATIENT
  Age: 51 Year
  Sex: Female
  Weight: 136.0791 kg

DRUGS (4)
  1. ACTOS [Suspect]
     Indication: DIABETES MELLITUS NON-INSULIN-DEPENDENT
     Dosage: 30 MG, 1 IN 1 D, PER ORAL
     Route: 048
     Dates: start: 20010401
  2. LIPITOR [Suspect]
     Indication: BLOOD CHOLESTEROL
     Dosage: 40 MG, QHS, PER ORAL
     Route: 048
     Dates: start: 20021201, end: 20031201
  3. CLONIDINE [Concomitant]
  4. BENICAR (OLMESARTAN MEDOXOMIL) [Concomitant]

REACTIONS (6)
  - DYSPNOEA EXERTIONAL [None]
  - FLUID RETENTION [None]
  - GALLBLADDER DISORDER [None]
  - MYALGIA [None]
  - SLEEP APNOEA SYNDROME [None]
  - WEIGHT INCREASED [None]
